FAERS Safety Report 21465145 (Version 2)
Quarter: 2022Q4

REPORT INFORMATION
  Report Type: Spontaneous
  Country: RU (occurrence: RU)
  Receive Date: 20221017
  Receipt Date: 20221028
  Transmission Date: 20230113
  Serious: Yes (Hospitalization)
  Sender: FDA-Public Use
  Company Number: RU-NOVOPROD-969583

PATIENT
  Age: 28 Year
  Sex: Female
  Weight: 52 kg

DRUGS (9)
  1. TRESIBA [Concomitant]
     Active Substance: INSULIN DEGLUDEC
     Dosage: 12.0,U,ONCE DAILY
     Dates: start: 20200310, end: 20210823
  2. APIDRA [Concomitant]
     Active Substance: INSULIN GLULISINE
     Dosage: 7.0,U,THRICE DAILY
     Dates: start: 20200310, end: 20210823
  3. FIASP [Suspect]
     Active Substance: INSULIN ASPART
     Indication: Type 1 diabetes mellitus
     Dosage: 1 IU, QD
     Dates: start: 20220622
  4. FIASP [Suspect]
     Active Substance: INSULIN ASPART
     Dosage: 4.0,U,ONCE DAILY
     Dates: start: 20220622
  5. FIASP [Suspect]
     Active Substance: INSULIN ASPART
     Dosage: 3.0,U,ONCE DAILY
     Dates: start: 20220622
  6. LEVEMIR [Suspect]
     Active Substance: INSULIN DETEMIR
     Dosage: 4.0,U,ONCE DAILY
     Dates: start: 20221004
  7. LEVEMIR [Suspect]
     Active Substance: INSULIN DETEMIR
     Indication: Type 1 diabetes mellitus
     Dosage: 10.0,U,TWICE DAILY
     Dates: start: 20220623, end: 20221003
  8. LEVEMIR [Suspect]
     Active Substance: INSULIN DETEMIR
     Dosage: 8.0,U,ONCE DAILY)
     Dates: start: 20221004
  9. UTROGESTAN [Concomitant]
     Active Substance: PROGESTERONE
     Dosage: 200 MG QD
     Route: 067
     Dates: start: 20220623

REACTIONS (1)
  - Abortion missed [Recovered/Resolved]

NARRATIVE: CASE EVENT DATE: 20221004
